FAERS Safety Report 9699046 (Version 1)
Quarter: 2013Q4

REPORT INFORMATION
  Report Type: Spontaneous
  Country: US (occurrence: None)
  Receive Date: 20131101
  Receipt Date: 20131101
  Transmission Date: 20140711
  Serious: Yes (Hospitalization)
  Sender: FDA-Public Use
  Company Number: 2013038642

PATIENT
  Age: 43 Year
  Sex: Male
  Weight: 81.65 kg

DRUGS (10)
  1. PRIVIGEN [Suspect]
     Indication: HYPOGAMMAGLOBULINAEMIA
     Dosage: 45 G 1X/4 WEEKS INTRAVEOUS (NOT OTHERWISE SPECIFIED)), (45 G 1X/4 WEEKS INTRAVENOUS (NOT OTHERWISE SPECIFIED))
     Route: 042
     Dates: start: 20131023, end: 20131023
  2. KLONOPIN (CLONAZEPAM) [Concomitant]
  3. ADVAIR (SERETIDE) [Concomitant]
  4. TRAZODONE (TRAZODONE) [Concomitant]
  5. ACETAMINOPHEN (PARACETAMOL) [Concomitant]
  6. DIPHENHYDRAMINE (DIPHENHYDRAMINE) [Concomitant]
  7. SODIUM CHLORIDE [Concomitant]
  8. EPI-PEN (EPINEPHRINE HYDROCHLORIDE) [Concomitant]
  9. EMLA (EMLA) [Concomitant]
  10. LMX (LIDOCAINE) [Concomitant]

REACTIONS (1)
  - Investigation [None]
